FAERS Safety Report 8343384-4 (Version None)
Quarter: 2012Q2

REPORT INFORMATION
  Report Type: 
  Country: None (occurrence: None)
  Receive Date: 20120508
  Receipt Date: 20120426
  Transmission Date: 20120825
  Serious: Yes (Hospitalization)
  Sender: FDA-Public Use
  Company Number: FR-BRISTOL-MYERS SQUIBB COMPANY-16559627

PATIENT
  Age: 48 Year
  Sex: Male

DRUGS (6)
  1. REYATAZ [Suspect]
     Indication: HIV INFECTION
     Dates: start: 20040713, end: 20120412
  2. XANAX [Concomitant]
  3. PAROXETINE HYDROCHLORIDE [Concomitant]
  4. RISPERDAL [Concomitant]
  5. NORVIR [Suspect]
     Dates: start: 20040701
  6. TRUVADA [Suspect]
     Dates: start: 20070101

REACTIONS (4)
  - HAEMATURIA [None]
  - RENAL COLIC [None]
  - RENAL FAILURE ACUTE [None]
  - INFLAMMATION [None]
